FAERS Safety Report 9911107 (Version 2)
Quarter: 2014Q1

REPORT INFORMATION
  Report Type: Spontaneous
  Country: US (occurrence: US)
  Receive Date: 20140219
  Receipt Date: 20140219
  Transmission Date: 20141002
  Serious: Yes (Other)
  Sender: FDA-Public Use
  Company Number: US-GILEAD-2012-0052501

PATIENT
  Age: 73 Year
  Sex: Female

DRUGS (11)
  1. LETAIRIS [Suspect]
     Indication: PULMONARY HYPERTENSION
     Dosage: 5 MG, UNK
     Route: 048
     Dates: start: 20120112, end: 201203
  2. LETAIRIS [Suspect]
     Indication: DRUG THERAPY
  3. ASPIRIN [Concomitant]
  4. CALCIUM CITRATE/VITAMIN D [Concomitant]
  5. CELEBREX [Concomitant]
  6. CLIMARA [Concomitant]
  7. DIFLUCAN [Concomitant]
  8. LASIX                              /00032601/ [Concomitant]
  9. SYNTHROID [Concomitant]
  10. CYTOMEL [Concomitant]
  11. NASONEX [Concomitant]

REACTIONS (9)
  - Drug ineffective [Unknown]
  - Chest pain [Unknown]
  - Chest discomfort [Unknown]
  - Unevaluable event [Unknown]
  - Electrolyte imbalance [Recovered/Resolved]
  - Oedema [Unknown]
  - Swelling [Unknown]
  - Dyspnoea [Unknown]
  - Oedema peripheral [Recovered/Resolved]
